FAERS Safety Report 12239165 (Version 2)
Quarter: 2016Q2

REPORT INFORMATION
  Report Type: Spontaneous
  Country: US (occurrence: US)
  Receive Date: 20160405
  Receipt Date: 20160427
  Transmission Date: 20160815
  Serious: Yes (Other)
  Sender: FDA-Public Use
  Company Number: US-JNJFOC-20160402802

PATIENT
  Age: 50 Year
  Sex: Male

DRUGS (4)
  1. STELARA [Suspect]
     Active Substance: USTEKINUMAB
     Indication: PSORIASIS
     Dosage: PATIENT RECEIVED APPROXIMMATELY 6 INJECTIONS.
     Route: 058
     Dates: start: 201406, end: 20160404
  2. NITROGLYCERIN. [Concomitant]
     Active Substance: NITROGLYCERIN
     Route: 065
  3. PRILOSEC [Concomitant]
     Active Substance: OMEPRAZOLE MAGNESIUM
     Route: 065
  4. SYNTHROID [Concomitant]
     Active Substance: LEVOTHYROXINE SODIUM
     Route: 065

REACTIONS (3)
  - Basal cell carcinoma [Unknown]
  - Malignant melanoma [Recovering/Resolving]
  - Actinic keratosis [Unknown]

NARRATIVE: CASE EVENT DATE: 201504
